FAERS Safety Report 9097062 (Version 1)
Quarter: 2013Q1

REPORT INFORMATION
  Report Type: Spontaneous
  Country: DK (occurrence: None)
  Receive Date: 20130125
  Receipt Date: 20130125
  Transmission Date: 20140127
  Serious: Yes (Disabling)
  Sender: FDA-Public Use
  Company Number: 2013MA000630

PATIENT
  Age: 54 Year
  Sex: Male

DRUGS (4)
  1. SERTRALINE HYDROCHLORIDE TABLETS, 100 MG (BASE) (AELLC) (SERTRALINE) [Suspect]
     Indication: DEPRESSION
     Route: 048
  2. TRAMADOL [Concomitant]
  3. DICLOFENAC [Concomitant]
  4. PREGABALIN [Concomitant]

REACTIONS (17)
  - Urine flow decreased [None]
  - Tunnel vision [None]
  - Tremor [None]
  - Fatigue [None]
  - Skin disorder [None]
  - Orgasm abnormal [None]
  - Lethargy [None]
  - Arthralgia [None]
  - Personality disorder [None]
  - Erectile dysfunction [None]
  - Dizziness [None]
  - Depression [None]
  - Confusional state [None]
  - Skin odour abnormal [None]
  - Hypertonic bladder [None]
  - Anger [None]
  - Suicidal ideation [None]
